FAERS Safety Report 5635642-9 (Version None)
Quarter: 2008Q1

REPORT INFORMATION
  Report Type: 
  Country: None (occurrence: None)
  Receive Date: 20080223
  Receipt Date: 20080212
  Transmission Date: 20080703
  Serious: Yes (Hospitalization)
  Sender: FDA-Public Use
  Company Number: US-ELI_LILLY_AND_COMPANY-US200802002571

PATIENT
  Sex: Female
  Weight: 81.633 kg

DRUGS (7)
  1. BYETTA [Suspect]
     Indication: DIABETES PROPHYLAXIS
     Dosage: 5 UG, 2/D
     Route: 058
     Dates: start: 20071106, end: 20071206
  2. BYETTA [Suspect]
     Dosage: 10 UG, 2/D
     Route: 058
     Dates: start: 20071207, end: 20080121
  3. BYETTA [Suspect]
     Dosage: 10 UG, 2/D
     Route: 058
     Dates: start: 20080101
  4. AVALIDE [Concomitant]
     Indication: HYPERTENSION
     Dates: start: 20030101
  5. METFORMIN HCL [Concomitant]
     Indication: DIABETES PROPHYLAXIS
     Dosage: 500 MG, 2/D
     Dates: start: 20030101
  6. LASIX [Concomitant]
     Indication: SWELLING
     Dosage: 20 MG, AS NEEDED
     Dates: start: 20040101
  7. SKELAXIN [Concomitant]
     Indication: FIBROMYALGIA
     Dosage: 800 MG, AS NEEDED
     Dates: start: 20070601

REACTIONS (10)
  - BLOOD GLUCOSE INCREASED [None]
  - BLOOD PRESSURE INCREASED [None]
  - BRONCHITIS [None]
  - BRONCHOPNEUMONIA [None]
  - COUGH [None]
  - DECREASED APPETITE [None]
  - DYSPNOEA [None]
  - OEDEMA PERIPHERAL [None]
  - STRESS [None]
  - WEIGHT DECREASED [None]
